FAERS Safety Report 17436846 (Version 1)
Quarter: 2020Q1

REPORT INFORMATION
  Report Type: Spontaneous
  Country: US (occurrence: US)
  Receive Date: 20200219
  Receipt Date: 20200219
  Transmission Date: 20200409
  Serious: No
  Sender: FDA-Public Use
  Company Number: US-JNJFOC-20200145710

PATIENT

DRUGS (1)
  1. TYLENOL [Suspect]
     Active Substance: ACETAMINOPHEN
     Indication: RIB FRACTURE
     Route: 065
     Dates: end: 20200126

REACTIONS (2)
  - Product use in unapproved indication [Unknown]
  - Retching [Recovered/Resolved]
